FAERS Safety Report 8445558-0 (Version None)
Quarter: 2012Q2

REPORT INFORMATION
  Report Type: 
  Country: None (occurrence: None)
  Receive Date: 20120618
  Receipt Date: 20120608
  Transmission Date: 20120825
  Serious: Yes (Other)
  Sender: FDA-Public Use
  Company Number: US-ASTRAZENECA-2009UW16262

PATIENT
  Age: 79 Year
  Sex: Female

DRUGS (1)
  1. ARIMIDEX [Suspect]
     Route: 048

REACTIONS (7)
  - NERVOUSNESS [None]
  - MUSCULAR WEAKNESS [None]
  - IRRITABILITY [None]
  - TREMOR [None]
  - ASTHENIA [None]
  - PARKINSON'S DISEASE [None]
  - HOT FLUSH [None]
